FAERS Safety Report 16903830 (Version 2)
Quarter: 2019Q4

REPORT INFORMATION
  Report Type: Report from Study
  Country: None (occurrence: US)
  Receive Date: 20191010
  Receipt Date: 20191014
  Transmission Date: 20200122
  Serious: Yes (Other)
  Sender: FDA-Public Use
  Company Number: US-ABBVIE-19P-163-2956257-00

PATIENT
  Age: 54 Year
  Sex: Male

DRUGS (1)
  1. SKYRIZI [Suspect]
     Active Substance: RISANKIZUMAB-RZAA
     Indication: PSORIASIS
     Route: 058
     Dates: start: 2019

REACTIONS (4)
  - Product administration error [Recovered/Resolved]
  - Skin ulcer [Not Recovered/Not Resolved]
  - Product storage error [Recovered/Resolved]
  - Upper respiratory tract infection [Recovering/Resolving]

NARRATIVE: CASE EVENT DATE: 20191007
